FAERS Safety Report 18135535 (Version 1)
Quarter: 2020Q3

REPORT INFORMATION
  Report Type: Spontaneous
  Country: JP (occurrence: JP)
  Receive Date: 20200811
  Receipt Date: 20200811
  Transmission Date: 20201103
  Serious: Yes (Other)
  Sender: FDA-Public Use
  Company Number: JP-PFIZER INC-2020298863

PATIENT
  Age: 7 Decade
  Sex: Male

DRUGS (6)
  1. IMIDAPRIL HYDROCHLORIDE [Suspect]
     Active Substance: IMIDAPRIL HYDROCHLORIDE
     Dosage: UNK
     Route: 048
  2. BISOPROLOL [Concomitant]
     Active Substance: BISOPROLOL
     Dosage: UNK
     Route: 048
  3. DILTIAZEM. [Concomitant]
     Active Substance: DILTIAZEM
     Dosage: UNK
     Route: 048
  4. TORASEMIDE [Concomitant]
     Active Substance: TORSEMIDE
     Dosage: UNK
     Route: 048
  5. EDOXABAN [Concomitant]
     Active Substance: EDOXABAN TOSYLATE
     Dosage: UNK
     Route: 048
  6. SPIRONOLACTONE. [Suspect]
     Active Substance: SPIRONOLACTONE
     Dosage: UNK
     Route: 048

REACTIONS (2)
  - Dizziness [Unknown]
  - Cardiac amyloidosis [Unknown]

NARRATIVE: CASE EVENT DATE: 2020
